FAERS Safety Report 8583122-3 (Version None)
Quarter: 2012Q3

REPORT INFORMATION
  Report Type: 
  Country: None (occurrence: None)
  Receive Date: 20120809
  Receipt Date: 20120731
  Transmission Date: 20120928
  Serious: Yes (Hospitalization, Other)
  Sender: FDA-Public Use
  Company Number: FR-ASTRAZENECA-2011SE13037

PATIENT
  Age: 759 Month
  Sex: Male
  Weight: 89 kg

DRUGS (3)
  1. RYTHMOL [Concomitant]
     Indication: ATRIAL FIBRILLATION
     Route: 048
     Dates: start: 20101201
  2. VANDETANIB [Suspect]
     Indication: THYROID CANCER
     Route: 048
     Dates: start: 20101219
  3. PREVISCAN [Concomitant]
     Indication: ATRIAL FIBRILLATION
     Route: 048
     Dates: start: 20101201

REACTIONS (5)
  - HYPERTENSION [None]
  - FOLLICULITIS [None]
  - DIARRHOEA [None]
  - DYSGEUSIA [None]
  - OPTIC ISCHAEMIC NEUROPATHY [None]
